FAERS Safety Report 5109304-0 (Version None)
Quarter: 2006Q3

REPORT INFORMATION
  Report Type: 
  Country: None (occurrence: None)
  Receive Date: 20060920
  Receipt Date: 20060920
  Transmission Date: 20061208
  Serious: Yes (Hospitalization)
  Sender: FDA-Public Use
  Company Number: US-GLAXOSMITHKLINE-A0620714A

PATIENT
  Sex: Male

DRUGS (4)
  1. WELLBUTRIN [Suspect]
     Route: 048
     Dates: start: 20050501, end: 20050601
  2. LEXAPRO [Concomitant]
  3. XANAX [Concomitant]
  4. CELEXA [Concomitant]

REACTIONS (9)
  - ANXIETY [None]
  - DELUSION [None]
  - DRUG HYPERSENSITIVITY [None]
  - HEPATIC ENZYME INCREASED [None]
  - JOINT SWELLING [None]
  - JUVENILE ARTHRITIS [None]
  - PRURITUS [None]
  - URTICARIA [None]
  - WEIGHT INCREASED [None]
